FAERS Safety Report 9510546 (Version 1)
Quarter: 2013Q3

REPORT INFORMATION
  Report Type: Spontaneous
  Country: BE (occurrence: BE)
  Receive Date: 20130909
  Receipt Date: 20130909
  Transmission Date: 20140515
  Serious: Yes (Other)
  Sender: FDA-Public Use
  Company Number: PHHY2013BE098816

PATIENT
  Age: 36 Year
  Sex: Female

DRUGS (2)
  1. RITALINE [Suspect]
     Indication: ATTENTION DEFICIT/HYPERACTIVITY DISORDER
     Dosage: 5 - 10 MG 1-2 PER DAY
     Route: 048
     Dates: start: 2012
  2. TYRAMINE [Concomitant]
     Indication: HYPERSENSITIVITY
     Dosage: UNK UKN, UNK

REACTIONS (8)
  - Autonomic nervous system imbalance [Unknown]
  - Palpitations [Unknown]
  - Fear [Unknown]
  - Dyspnoea [Unknown]
  - Malaise [Unknown]
  - Hypersensitivity [Unknown]
  - Blood pressure increased [Unknown]
  - Headache [Unknown]
